FAERS Safety Report 21734506 (Version 5)
Quarter: 2023Q2

REPORT INFORMATION
  Report Type: Spontaneous
  Country: US (occurrence: US)
  Receive Date: 20221215
  Receipt Date: 20230524
  Transmission Date: 20230721
  Serious: No
  Sender: FDA-Public Use
  Company Number: US-PFIZER INC-PV202200123108

PATIENT
  Age: 78 Year
  Sex: Female

DRUGS (1)
  1. IBRANCE [Suspect]
     Active Substance: PALBOCICLIB
     Dosage: 100 MG, UNK

REACTIONS (5)
  - Gait disturbance [Unknown]
  - Paranoia [Unknown]
  - Asthenia [Unknown]
  - Herpes zoster [Unknown]
  - Nausea [Unknown]

NARRATIVE: CASE EVENT DATE: 20230512
